FAERS Safety Report 13004284 (Version 2)
Quarter: 2017Q2

REPORT INFORMATION
  Report Type: Spontaneous
  Country: US (occurrence: US)
  Receive Date: 20161206
  Receipt Date: 20170427
  Transmission Date: 20170830
  Serious: No
  Sender: FDA-Public Use
  Company Number: US-BIOGEN-2016BI00325048

PATIENT
  Sex: Female

DRUGS (1)
  1. AVONEX [Suspect]
     Active Substance: INTERFERON BETA-1A
     Indication: MULTIPLE SCLEROSIS
     Route: 030
     Dates: start: 20110314, end: 201301

REACTIONS (3)
  - Multiple sclerosis [Not Recovered/Not Resolved]
  - Dental caries [Not Recovered/Not Resolved]
  - Visual impairment [Not Recovered/Not Resolved]
